FAERS Safety Report 4634413-X (Version None)
Quarter: 2005Q2

REPORT INFORMATION
  Report Type: 
  Country: None (occurrence: None)
  Receive Date: 20050411
  Receipt Date: 20050330
  Transmission Date: 20051028
  Serious: Yes (Death)
  Sender: FDA-Public Use
  Company Number: HQWYE550130MAR05

PATIENT
  Age: 86 Year
  Sex: Male

DRUGS (1)
  1. CORDARONE [Suspect]
     Dosage: 200 MG TABLET
     Route: 048
     Dates: start: 20020101

REACTIONS (1)
  - ACUTE LEFT VENTRICULAR FAILURE [None]
